FAERS Safety Report 10143921 (Version 2)
Quarter: 2014Q2

REPORT INFORMATION
  Report Type: Spontaneous
  Country: FR (occurrence: FR)
  Receive Date: 20140430
  Receipt Date: 20140626
  Transmission Date: 20141212
  Serious: Yes (Hospitalization)
  Sender: FDA-Public Use
  Company Number: FR-TEVA-478149ISR

PATIENT
  Age: 17 Year
  Sex: Female
  Weight: 68.3 kg

DRUGS (1)
  1. LEELOO [Suspect]
     Indication: ORAL CONTRACEPTION
     Route: 048
     Dates: start: 201307, end: 20140414

REACTIONS (2)
  - Transaminases increased [Not Recovered/Not Resolved]
  - Liver injury [Not Recovered/Not Resolved]
